FAERS Safety Report 8225135-7 (Version None)
Quarter: 2012Q1

REPORT INFORMATION
  Report Type: 
  Country: None (occurrence: None)
  Receive Date: 20120321
  Receipt Date: 20120313
  Transmission Date: 20120608
  Serious: No
  Sender: FDA-Public Use
  Company Number: CA-JNJFOC-20120307056

PATIENT
  Sex: Female
  Weight: 54.5 kg

DRUGS (4)
  1. VITAMIN B-12 [Concomitant]
     Route: 030
  2. PURINETHOL [Concomitant]
     Route: 065
  3. REMICADE [Suspect]
     Indication: CROHN'S DISEASE
     Route: 042
     Dates: start: 20110310
  4. ALESSE [Concomitant]
     Route: 048

REACTIONS (1)
  - HERPES ZOSTER [None]
